FAERS Safety Report 6436886-9 (Version None)
Quarter: 2009Q4

REPORT INFORMATION
  Report Type: 
  Country: None (occurrence: None)
  Receive Date: 20091109
  Receipt Date: 20091002
  Transmission Date: 20100525
  Serious: Yes (Hospitalization)
  Sender: FDA-Public Use
  Company Number: JPI-C-005815

PATIENT
  Age: 27 Year
  Sex: Male
  Weight: 74.1178 kg

DRUGS (5)
  1. SODIUM OXYBATE (500 MILLIGRAM/MILLILITERS, SOLUTION) (SODIUM OXYBATE) [Suspect]
     Indication: FIBROMYALGIA
     Dosage: SEE IMAGE, ORAL
     Route: 048
     Dates: start: 20080808, end: 20080821
  2. SODIUM OXYBATE (500 MILLIGRAM/MILLILITERS, SOLUTION) (SODIUM OXYBATE) [Suspect]
     Indication: FIBROMYALGIA
     Dosage: SEE IMAGE, ORAL
     Route: 048
     Dates: start: 20080822, end: 20080903
  3. SODIUM OXYBATE (500 MILLIGRAM/MILLILITERS, SOLUTION) (SODIUM OXYBATE) [Suspect]
     Indication: FIBROMYALGIA
     Dosage: SEE IMAGE, ORAL
     Route: 048
     Dates: start: 20080904, end: 20081005
  4. SODIUM OXYBATE (500 MILLIGRAM/MILLILITERS, SOLUTION) (SODIUM OXYBATE) [Suspect]
     Indication: FIBROMYALGIA
     Dosage: SEE IMAGE, ORAL
     Route: 048
     Dates: start: 20081006
  5. MULTIVITAMIN (TABLETS) [Concomitant]

REACTIONS (1)
  - MENTAL DISORDER [None]
